FAERS Safety Report 6253538-9 (Version None)
Quarter: 2009Q3

REPORT INFORMATION
  Report Type: 
  Country: None (occurrence: None)
  Receive Date: 20090701
  Receipt Date: 20090624
  Transmission Date: 20100115
  Serious: Yes (Hospitalization)
  Sender: FDA-Public Use
  Company Number: FR-AMGEN-QUU348431

PATIENT
  Age: 53 Year
  Sex: Female

DRUGS (1)
  1. ARANESP [Suspect]
     Indication: MYELODYSPLASTIC SYNDROME
     Route: 058
     Dates: start: 20080901, end: 20081001

REACTIONS (1)
  - SYNCOPE [None]
